FAERS Safety Report 7124834-8 (Version None)
Quarter: 2010Q4

REPORT INFORMATION
  Report Type: 
  Country: None (occurrence: None)
  Receive Date: 20101129
  Receipt Date: 20101119
  Transmission Date: 20110411
  Serious: No
  Sender: FDA-Public Use
  Company Number: US-B.I. PHARMACEUTICALS,INC./RIDGEFIELD-2009-BP-13419BP

PATIENT
  Sex: Female

DRUGS (4)
  1. SPIRIVA [Suspect]
     Indication: CHRONIC OBSTRUCTIVE PULMONARY DISEASE
     Dosage: 18 MCG
     Route: 055
     Dates: start: 20090901
  2. SPIRIVA [Suspect]
     Indication: ASTHMA
  3. ASMANEX TWISTHALER [Concomitant]
     Indication: CHRONIC OBSTRUCTIVE PULMONARY DISEASE
     Route: 055
     Dates: start: 20090801, end: 20101001
  4. ASMANEX TWISTHALER [Concomitant]
     Indication: ASTHMA

REACTIONS (5)
  - BLOOD CHOLESTEROL INCREASED [None]
  - DRY MOUTH [None]
  - DYSPNOEA [None]
  - DYSPNOEA EXERTIONAL [None]
  - VISUAL IMPAIRMENT [None]
